FAERS Safety Report 18728956 (Version 2)
Quarter: 2021Q1

REPORT INFORMATION
  Report Type: Report from Study
  Country: AE (occurrence: AE)
  Receive Date: 20210112
  Receipt Date: 20210215
  Transmission Date: 20210419
  Serious: Yes (Hospitalization)
  Sender: FDA-Public Use
  Company Number: NVSC2021AE002070

PATIENT
  Age: 62 Year
  Sex: Male

DRUGS (6)
  1. ENTRESTO [Suspect]
     Active Substance: SACUBITRIL\VALSARTAN
     Dosage: 50 MG, BID
     Route: 048
     Dates: start: 20191130
  2. ENTRESTO [Suspect]
     Active Substance: SACUBITRIL\VALSARTAN
     Dosage: 100 MG, BID
     Route: 048
     Dates: start: 20181105
  3. SPIRONOLACTONE. [Concomitant]
     Active Substance: SPIRONOLACTONE
     Indication: PRODUCT USED FOR UNKNOWN INDICATION
     Dosage: 25 MG, UNKNOWN
     Route: 065
  4. ATORVASTATIN [Concomitant]
     Active Substance: ATORVASTATIN
     Indication: PRODUCT USED FOR UNKNOWN INDICATION
     Dosage: UNK
     Route: 065
  5. ENTRESTO [Suspect]
     Active Substance: SACUBITRIL\VALSARTAN
     Indication: CARDIAC FAILURE
     Dosage: 50 MG, BID
     Route: 048
     Dates: start: 20181012
  6. BISOPROLOL [Concomitant]
     Active Substance: BISOPROLOL
     Indication: PRODUCT USED FOR UNKNOWN INDICATION
     Dosage: 2.5 MG, UNKNOWN
     Route: 065

REACTIONS (3)
  - Heart rate increased [Recovered/Resolved]
  - Chest discomfort [Recovered/Resolved]
  - Myocardial infarction [Recovered/Resolved]

NARRATIVE: CASE EVENT DATE: 202006
